FAERS Safety Report 25488573 (Version 1)
Quarter: 2025Q2

REPORT INFORMATION
  Report Type: Report from Study
  Country: KR (occurrence: KR)
  Receive Date: 20250627
  Receipt Date: 20250627
  Transmission Date: 20250717
  Serious: Yes (Hospitalization)
  Sender: DAIICHI
  Company Number: KR-DSJP-DS-2025-149200-KR

PATIENT
  Age: 86 Year
  Sex: Male
  Weight: 156.9 kg

DRUGS (10)
  1. EDOXABAN [Suspect]
     Active Substance: EDOXABAN
     Indication: Atrial fibrillation
     Dosage: 1 DOSAGE FORM, QD
     Route: 048
     Dates: start: 20240527
  2. GUJU SPIRODACTONE [Concomitant]
     Indication: Prophylaxis
     Dosage: 0.5 DOSAGE FORM, QD
     Route: 048
     Dates: start: 20240314
  3. GUJU SPIRODACTONE [Concomitant]
     Indication: Oedema
  4. LASIX [Concomitant]
     Active Substance: FUROSEMIDE
     Indication: Prophylaxis
     Dosage: 1 DOSAGE FORM, QD
     Route: 048
     Dates: start: 20240314
  5. LASIX [Concomitant]
     Active Substance: FUROSEMIDE
     Indication: Oedema
  6. ARB IB [Concomitant]
     Indication: Hypertension
     Dosage: 1 DOSAGE FORM, QD
     Route: 048
     Dates: start: 20240314, end: 20240819
  7. NEWSTATIN A [Concomitant]
     Indication: Vascular disorder prophylaxis
     Dosage: 1 DOSAGE FORM, QD
     Route: 048
     Dates: start: 20240314
  8. ERDOSTEINE [Concomitant]
     Active Substance: ERDOSTEINE
     Indication: Prophylaxis
     Dosage: 1 DOSAGE FORM, BID
     Route: 048
     Dates: start: 20240326, end: 20240819
  9. ERDOSTEINE [Concomitant]
     Active Substance: ERDOSTEINE
     Indication: Cough
  10. DILATREND SR [Concomitant]
     Indication: Hypertension
     Dosage: 1 DOSAGE FORM, QD
     Route: 048
     Dates: start: 20240314, end: 20240819

REACTIONS (1)
  - Hepatic cirrhosis [Recovered/Resolved]

NARRATIVE: CASE EVENT DATE: 20240807
